FAERS Safety Report 19196176 (Version 2)
Quarter: 2021Q2

REPORT INFORMATION
  Report Type: Spontaneous
  Country: IT (occurrence: IT)
  Receive Date: 20210429
  Receipt Date: 20210610
  Transmission Date: 20210717
  Serious: Yes (Congenital Anomaly, Other)
  Sender: FDA-Public Use
  Company Number: IT-PURDUE-USA-2021-0252032

PATIENT
  Sex: Female

DRUGS (22)
  1. VITAMIN D3 [Suspect]
     Active Substance: CHOLECALCIFEROL
     Indication: PRODUCT USED FOR UNKNOWN INDICATION
     Dosage: UNK
     Route: 064
  2. BETAMETHASONE. [Suspect]
     Active Substance: BETAMETHASONE
     Indication: PRODUCT USED FOR UNKNOWN INDICATION
     Dosage: UNK
     Route: 064
  3. NADROPARIN [Suspect]
     Active Substance: NADROPARIN
     Indication: PRODUCT USED FOR UNKNOWN INDICATION
     Dosage: UNK
     Route: 064
  4. DENOSUMAB [Suspect]
     Active Substance: DENOSUMAB
     Indication: PRODUCT USED FOR UNKNOWN INDICATION
     Dosage: UNK
     Route: 064
  5. CARDIOASPIRIN [Suspect]
     Active Substance: ASPIRIN
     Indication: PRODUCT USED FOR UNKNOWN INDICATION
     Dosage: UNK
     Route: 064
  6. PANTOPRAZOLE [Suspect]
     Active Substance: PANTOPRAZOLE
  7. ALECTINIB. [Suspect]
     Active Substance: ALECTINIB
  8. PANTOPRAZOLE [Suspect]
     Active Substance: PANTOPRAZOLE
     Indication: PRODUCT USED FOR UNKNOWN INDICATION
     Dosage: UNK
     Route: 064
  9. CALCIUM CARBONATE. [Suspect]
     Active Substance: CALCIUM CARBONATE
  10. MORPHINE SULFATE (SIMILAR TO NDA 19?516) [Suspect]
     Active Substance: MORPHINE SULFATE
     Dosage: UNK
     Route: 064
  11. PREDNISONE. [Suspect]
     Active Substance: PREDNISONE
  12. NADROPARIN [Suspect]
     Active Substance: NADROPARIN
  13. DENOSUMAB [Suspect]
     Active Substance: DENOSUMAB
  14. VITAMIN D3 [Suspect]
     Active Substance: CHOLECALCIFEROL
  15. MORPHINE SULFATE (SIMILAR TO NDA 19?516) [Suspect]
     Active Substance: MORPHINE SULFATE
     Indication: PRODUCT USED FOR UNKNOWN INDICATION
     Dosage: UNK
     Route: 064
  16. ALECTINIB. [Suspect]
     Active Substance: ALECTINIB
     Indication: PRODUCT USED FOR UNKNOWN INDICATION
     Dosage: UNK
     Route: 064
  17. PREDNISONE. [Suspect]
     Active Substance: PREDNISONE
     Indication: PRODUCT USED FOR UNKNOWN INDICATION
     Dosage: UNK
     Route: 064
  18. BETAMETHASONE. [Suspect]
     Active Substance: BETAMETHASONE
  19. CARDIOASPIRIN [Suspect]
     Active Substance: ASPIRIN
  20. CALCIUM CARBONATE. [Suspect]
     Active Substance: CALCIUM CARBONATE
     Indication: PRODUCT USED FOR UNKNOWN INDICATION
     Dosage: UNK
     Route: 064
  21. FOLIC ACID. [Suspect]
     Active Substance: FOLIC ACID
     Indication: PRODUCT USED FOR UNKNOWN INDICATION
     Dosage: UNK
     Route: 064
  22. FOLIC ACID. [Suspect]
     Active Substance: FOLIC ACID

REACTIONS (3)
  - White matter lesion [Unknown]
  - Foetal exposure during pregnancy [Unknown]
  - Fistula [Unknown]
